FAERS Safety Report 5206239-X (Version None)
Quarter: 2007Q1

REPORT INFORMATION
  Report Type: 
  Country: None (occurrence: None)
  Receive Date: 20070111
  Receipt Date: 20061229
  Transmission Date: 20070707
  Serious: Yes (Hospitalization)
  Sender: FDA-Public Use
  Company Number: US-SHR-US-2006-025700

PATIENT
  Age: 49 Year
  Sex: Male

DRUGS (4)
  1. BETASERON [Suspect]
     Dosage: 8 MIU, EVERY 2D
     Route: 058
     Dates: start: 20040331
  2. REQUIP [Suspect]
  3. TRAZODONE HCL [Suspect]
  4. CLONAZEPAM [Suspect]

REACTIONS (3)
  - DRUG WITHDRAWAL SYNDROME [None]
  - ENCEPHALOPATHY [None]
  - INJECTION SITE INFLAMMATION [None]
